FAERS Safety Report 13756458 (Version 2)
Quarter: 2017Q3

REPORT INFORMATION
  Report Type: Report from Study
  Country: HU (occurrence: HU)
  Receive Date: 20170714
  Receipt Date: 20170809
  Transmission Date: 20171127
  Serious: Yes (Hospitalization, Other)
  Sender: FDA-Public Use
  Company Number: HU-009507513-1704HUN011109

PATIENT
  Age: 58 Year
  Sex: Male

DRUGS (5)
  1. CARDOGREL [Concomitant]
     Dosage: 1 DF, QD (1X1)
  2. FRONTIN [Concomitant]
     Active Substance: ALPRAZOLAM
     Dosage: 0.25 MG, UNK
  3. PANTOPRAZOLE [Concomitant]
     Active Substance: PANTOPRAZOLE
     Dosage: 40 MG, UNK
  4. PEMBROLIZUMAB. [Suspect]
     Active Substance: PEMBROLIZUMAB
     Indication: METASTATIC MALIGNANT MELANOMA
     Dosage: 152 MG, UNK
     Route: 042
     Dates: start: 20170413
  5. EGIRAMLON [Concomitant]
     Dosage: 1 DF, QD (1X1)

REACTIONS (22)
  - Viral infection [Unknown]
  - Nausea [Unknown]
  - Cough [Recovering/Resolving]
  - Colitis ulcerative [Recovering/Resolving]
  - Chest pain [Unknown]
  - Blood lactate dehydrogenase increased [Unknown]
  - Nausea [Recovered/Resolved]
  - Headache [Unknown]
  - Asthenia [Recovered/Resolved]
  - Musculoskeletal pain [Unknown]
  - Testicular disorder [Unknown]
  - Blood sodium abnormal [Unknown]
  - Leukocytosis [Unknown]
  - Blood count abnormal [Unknown]
  - Metastases to liver [Unknown]
  - Back pain [Unknown]
  - Gastrointestinal wall thickening [Unknown]
  - Metastases to adrenals [Unknown]
  - Adrenal mass [Unknown]
  - Blood glucose increased [Unknown]
  - Decreased appetite [Recovered/Resolved]
  - Haemangioma of liver [Unknown]

NARRATIVE: CASE EVENT DATE: 2017
